FAERS Safety Report 8740331 (Version 2)
Quarter: 2013Q1

REPORT INFORMATION
  Report Type: Spontaneous
  Country: US (occurrence: US)
  Receive Date: 20120823
  Receipt Date: 20130111
  Transmission Date: 20140127
  Serious: No
  Sender: FDA-Public Use
  Company Number: US-009507513-1208USA003336

PATIENT
  Age: 27 Year
  Sex: Female
  Weight: 68.48 kg

DRUGS (2)
  1. IMPLANON [Suspect]
     Indication: CONTRACEPTION
     Dosage: UNK
     Route: 059
     Dates: start: 20111228
  2. IBUPROFEN [Concomitant]

REACTIONS (3)
  - Coital bleeding [Unknown]
  - Uterine disorder [Unknown]
  - Metrorrhagia [Unknown]
